FAERS Safety Report 11760071 (Version 1)
Quarter: 2015Q4

REPORT INFORMATION
  Report Type: Report from Study
  Country: US (occurrence: US)
  Receive Date: 20151120
  Receipt Date: 20151120
  Transmission Date: 20160304
  Serious: Yes (Other)
  Sender: FDA-Public Use
  Company Number: PHEH2015US023317

PATIENT
  Sex: Female

DRUGS (1)
  1. GLEEVEC [Suspect]
     Active Substance: IMATINIB MESYLATE
     Indication: PRODUCT USED FOR UNKNOWN INDICATION
     Dosage: 300 MG, UNK (FOR 8 YEARS)
     Route: 065

REACTIONS (5)
  - Gastrointestinal stromal tumour [Unknown]
  - Nausea [Unknown]
  - Hair texture abnormal [Unknown]
  - Stress [Unknown]
  - Asthenia [Unknown]
